FAERS Safety Report 4944535-1 (Version None)
Quarter: 2006Q1

REPORT INFORMATION
  Report Type: 
  Country: None (occurrence: None)
  Receive Date: 20060123
  Receipt Date: 20051103
  Transmission Date: 20060701
  Serious: No
  Sender: FDA-Public Use
  Company Number: 2005-BP-19265BP

PATIENT
  Sex: Male

DRUGS (1)
  1. APTIVUS [Suspect]
     Indication: HIV INFECTION
     Dosage: TPV/RTV 1000-400 MG (SEE TEXT, TPV/R 500 MG/2000 MG BID) PO
     Route: 048
     Dates: start: 20051019

REACTIONS (1)
  - ELECTROCARDIOGRAM PR PROLONGATION [None]
